FAERS Safety Report 5972045-1 (Version None)
Quarter: 2008Q4

REPORT INFORMATION
  Report Type: 
  Country: None (occurrence: None)
  Receive Date: 20081201
  Receipt Date: 20080214
  Transmission Date: 20090506
  Serious: No
  Sender: FDA-Public Use
  Company Number: US-TEVA-167536USA

PATIENT
  Sex: Female

DRUGS (4)
  1. SALBUTAMOL SULFATE INHALATION, 0.09 MG [Suspect]
     Dosage: 1-2 PUFFS Q 3-4 HOURS
     Route: 055
     Dates: start: 20080201
  2. LISINOPRIL [Concomitant]
  3. DYAZIDE [Concomitant]
  4. CONJUGATED ESTROGENS [Concomitant]

REACTIONS (2)
  - HYPERSENSITIVITY [None]
  - OEDEMA PERIPHERAL [None]
